FAERS Safety Report 11242868 (Version 1)
Quarter: 2015Q3

REPORT INFORMATION
  Report Type: Spontaneous
  Country: US (occurrence: None)
  Receive Date: 20150701
  Receipt Date: 20150701
  Transmission Date: 20151125
  Serious: Yes (Hospitalization)
  Sender: FDA-Public Use
  Company Number: None

PATIENT
  Age: 52 Year
  Sex: Female

DRUGS (1)
  1. HUMIRA [Suspect]
     Active Substance: ADALIMUMAB
     Dosage: INJECT 40MG ONCE EVERY OTHER WEEK  SUBCUTANEOUSLY
     Route: 058
     Dates: start: 20150507, end: 20150620

REACTIONS (1)
  - Headache [None]

NARRATIVE: CASE EVENT DATE: 20150602
